FAERS Safety Report 5557439-0 (Version None)
Quarter: 2007Q4

REPORT INFORMATION
  Report Type: 
  Country: None (occurrence: None)
  Receive Date: 20071211
  Receipt Date: 20071130
  Transmission Date: 20080405
  Serious: Yes (Hospitalization)
  Sender: FDA-Public Use
  Company Number: GXKR2007CA10293

PATIENT
  Age: 70 Year
  Sex: Female

DRUGS (12)
  1. PREDNISONE [Suspect]
     Indication: ADRENAL INSUFFICIENCY
     Dosage: 5 MG, QD
     Dates: start: 20060529
  2. PHENYTOIN [Suspect]
     Indication: CONVULSION
     Dosage: 200 MG, QD, ORAL
     Route: 048
     Dates: start: 20060529
  3. LEVOTHYROXINE SODIUM [Concomitant]
  4. DOMPERIDONE (DOMPERIDONE) [Concomitant]
  5. CABERGOLINE (GABERGOLINE) [Concomitant]
  6. FLUTICASONE PROPIONATE [Concomitant]
  7. ASPIRIN (ACETYLSALICYLIC ACID) ENTERIC-FILM-COATED TABLET [Concomitant]
  8. ATORVASTATIN CALCIUM [Concomitant]
  9. LEVODOPA-CARBIDOPA (CARBIDOPA, LEVODOPA) TABLET, 100/25 [Concomitant]
  10. CALCIUM CARBONATE (CALCIUM CARBONATE) [Concomitant]
  11. DOCUSATE SODIUM (DOCUSATE SODIUM) [Concomitant]
  12. HEPARIN [Concomitant]

REACTIONS (4)
  - ADRENOCORTICAL INSUFFICIENCY ACUTE [None]
  - BLOOD PROLACTIN INCREASED [None]
  - CONDITION AGGRAVATED [None]
  - DRUG INTERACTION [None]
